FAERS Safety Report 13627101 (Version 2)
Quarter: 2019Q2

REPORT INFORMATION
  Report Type: Report from Study
  Country: IT (occurrence: IT)
  Receive Date: 20170608
  Receipt Date: 20190404
  Transmission Date: 20190711
  Serious: Yes (Other)
  Sender: FDA-Public Use
  Company Number: IT-ADIENNEP-2017AD000156

PATIENT
  Age: 31 Year
  Sex: Male

DRUGS (2)
  1. TREOSULFAN [Suspect]
     Active Substance: TREOSULFAN
     Indication: STEM CELL TRANSPLANT
     Dosage: 14000 MG/M2 DAILY ON DAYS - 4, -3 AND - 2
  2. TEPADINA [Suspect]
     Active Substance: THIOTEPA
     Indication: STEM CELL TRANSPLANT
     Dosage: 6 MG/KG; ON DAY -5
     Route: 042
     Dates: start: 20150830

REACTIONS (2)
  - Febrile neutropenia [Recovered/Resolved]
  - Weight increased [Recovered/Resolved]

NARRATIVE: CASE EVENT DATE: 20150831
